FAERS Safety Report 13746264 (Version 2)
Quarter: 2017Q3

REPORT INFORMATION
  Report Type: Spontaneous
  Country: DE (occurrence: DE)
  Receive Date: 20170712
  Receipt Date: 20170818
  Transmission Date: 20171127
  Serious: Yes (Other)
  Sender: FDA-Public Use
  Company Number: DE-EMD SERONO-8167820

PATIENT
  Sex: Female
  Weight: 92 kg

DRUGS (2)
  1. REBIF [Suspect]
     Active Substance: INTERFERON BETA-1A
     Indication: MULTIPLE SCLEROSIS
     Route: 058
     Dates: start: 201206, end: 201702
  2. FEMIGOA [Concomitant]
     Active Substance: ESTRADIOL
     Indication: CONTRACEPTION

REACTIONS (4)
  - Weight increased [Unknown]
  - Visual impairment [Recovered/Resolved]
  - Jaw disorder [Not Recovered/Not Resolved]
  - Tooth disorder [Recovered/Resolved with Sequelae]

NARRATIVE: CASE EVENT DATE: 2014
